FAERS Safety Report 5646609-9 (Version None)
Quarter: 2008Q1

REPORT INFORMATION
  Report Type: 
  Country: None (occurrence: None)
  Receive Date: 20080303
  Receipt Date: 20080227
  Transmission Date: 20080703
  Serious: Yes (Death)
  Sender: FDA-Public Use
  Company Number: PHHY2008US02290

PATIENT

DRUGS (1)
  1. CLOZARIL [Suspect]

REACTIONS (1)
  - RESPIRATORY ARREST [None]
